FAERS Safety Report 23981535 (Version 1)
Quarter: 2024Q2

REPORT INFORMATION
  Report Type: Spontaneous
  Country: CZ (occurrence: CZ)
  Receive Date: 20240617
  Receipt Date: 20240617
  Transmission Date: 20240716
  Serious: Yes (Other)
  Sender: FDA-Public Use
  Company Number: None

PATIENT
  Age: 40 Year
  Sex: Male
  Weight: 72 kg

DRUGS (2)
  1. CLARITHROMYCIN [Suspect]
     Active Substance: CLARITHROMYCIN
     Indication: Pneumonia
     Dosage: 500 MILLIGRAM, BID
     Route: 048
     Dates: start: 20240516
  2. ERDOSTEINE [Concomitant]
     Active Substance: ERDOSTEINE
     Indication: Pneumonia
     Dosage: 300 MILLIGRAM, BID (ONE TABLET TWICE A DAY, 1-1-00
     Route: 048
     Dates: start: 20240514

REACTIONS (5)
  - Renal pain [Recovering/Resolving]
  - Lymph node pain [Recovering/Resolving]
  - Taste disorder [Recovered/Resolved]
  - Somnolence [Recovered/Resolved]
  - Asthenia [Recovered/Resolved]

NARRATIVE: CASE EVENT DATE: 20240516
